FAERS Safety Report 4267052-3 (Version None)
Quarter: 2004Q1

REPORT INFORMATION
  Report Type: 
  Country: None (occurrence: None)
  Receive Date: 20040107
  Receipt Date: 20031229
  Transmission Date: 20041129
  Serious: Yes (Other)
  Sender: FDA-Public Use
  Company Number: GB-JNJFOC-20031205230

PATIENT
  Age: 28 Year
  Sex: Male
  Weight: 53 kg

DRUGS (4)
  1. REMICADE [Suspect]
     Indication: ANKYLOSING SPONDYLITIS
     Dosage: INTRAVENOUS
     Route: 042
     Dates: start: 20030101, end: 20031210
  2. METHOTREXATE [Concomitant]
  3. FOLIC ACID [Concomitant]
  4. NAPROXEN [Concomitant]

REACTIONS (1)
  - SCHIZOPHRENIA, PARANOID TYPE [None]
